FAERS Safety Report 6050584-5 (Version None)
Quarter: 2009Q1

REPORT INFORMATION
  Report Type: 
  Country: None (occurrence: None)
  Receive Date: 20090126
  Receipt Date: 20090114
  Transmission Date: 20090719
  Serious: Yes (Life-Threatening, Hospitalization)
  Sender: FDA-Public Use
  Company Number: IT-PFIZER INC-2009156207

PATIENT

DRUGS (11)
  1. SUNITINIB MALATE [Suspect]
     Indication: BREAST CANCER
     Dosage: 37.5 MG, 1X/DAY
     Route: 048
     Dates: start: 20080613, end: 20090111
  2. DOCETAXEL [Suspect]
     Indication: BREAST CANCER
     Dosage: 130 MG, EVERY 3 WEEKS
     Route: 042
     Dates: start: 20080612, end: 20080930
  3. EUTIROX [Concomitant]
     Dosage: UNK
     Dates: start: 20020202
  4. RABEPRAZOLE SODIUM [Concomitant]
     Dosage: 10 MG, DAILY
     Dates: start: 20080627
  5. CALCIUM [Concomitant]
     Indication: HYPOCALCAEMIA
     Dosage: 600 MG, 1X/DAY
     Dates: start: 20080703
  6. IBANDRONATE [Concomitant]
     Indication: METASTASES TO BONE
     Dosage: 6 MG, EVERY 3 WEEKS
     Dates: start: 20080616
  7. SUCRALFATE [Concomitant]
     Dosage: 2 G, 2X/DAY
     Dates: start: 20081222
  8. RETINOL [Concomitant]
     Indication: MUCOSAL INFLAMMATION
     Dosage: UNK
     Dates: start: 20081222
  9. FUROSEMIDE [Concomitant]
     Dosage: 25 MG, DAILY
     Dates: start: 20090107
  10. BISOPROLOL [Concomitant]
     Indication: HYPERTENSION
     Dosage: 2.5 MG, DAILY
     Dates: start: 20090613
  11. LERCANIDIPINE [Suspect]
     Dosage: 20 MG, DAILY
     Dates: start: 20090113

REACTIONS (1)
  - MYOCARDIAL ISCHAEMIA [None]
